FAERS Safety Report 5591268-7 (Version None)
Quarter: 2008Q1

REPORT INFORMATION
  Report Type: 
  Country: None (occurrence: None)
  Receive Date: 20080115
  Receipt Date: 20080109
  Transmission Date: 20080703
  Serious: Yes (Death, Other)
  Sender: FDA-Public Use
  Company Number: US-BAYER-200714454BWH

PATIENT
  Age: 57 Year
  Sex: Male

DRUGS (4)
  1. NEXAVAR [Suspect]
     Indication: HEPATIC NEOPLASM MALIGNANT
     Dosage: TOTAL DAILY DOSE: 400 MG  UNIT DOSE: 200 MG
     Route: 048
     Dates: start: 20070718, end: 20070721
  2. NEXAVAR [Suspect]
     Dosage: TOTAL DAILY DOSE: 200 MG  UNIT DOSE: 200 MG
     Route: 048
     Dates: start: 20070722, end: 20071006
  3. PRILOSEC [Concomitant]
  4. UNKNOWN MEDICATION FOR FLUID RETENTION [Concomitant]
     Indication: FLUID RETENTION

REACTIONS (2)
  - DEATH [None]
  - WEIGHT DECREASED [None]
